FAERS Safety Report 4388405-9 (Version None)
Quarter: 2004Q2

REPORT INFORMATION
  Report Type: 
  Country: None (occurrence: None)
  Receive Date: 20040625
  Receipt Date: 20040615
  Transmission Date: 20050107
  Serious: Yes (Hospitalization)
  Sender: FDA-Public Use
  Company Number: HQ6090209JAN2003

PATIENT
  Age: 80 Year
  Sex: 0

DRUGS (2)
  1. RAPAMUNE [Suspect]
     Indication: GLOMERULONEPHRITIS CHRONIC
     Dosage: 5 MG 1X PER 1 DAY, ORAL; 3 MG 1X PER 1 DAY, ORAL
     Route: 048
     Dates: start: 20020215, end: 20020301
  2. RAPAMUNE [Suspect]
     Indication: GLOMERULONEPHRITIS CHRONIC
     Dosage: 5 MG 1X PER 1 DAY, ORAL; 3 MG 1X PER 1 DAY, ORAL
     Route: 048
     Dates: start: 20020301

REACTIONS (3)
  - CARDIAC FAILURE CONGESTIVE [None]
  - PNEUMONIA [None]
  - RENAL FAILURE ACUTE [None]
